FAERS Safety Report 7822318-2 (Version None)
Quarter: 2011Q4

REPORT INFORMATION
  Report Type: 
  Country: None (occurrence: None)
  Receive Date: 20111018
  Receipt Date: 20101018
  Transmission Date: 20120403
  Serious: No
  Sender: FDA-Public Use
  Company Number: US-ASTRAZENECA-2010SE39508

PATIENT
  Age: 29817 Day
  Sex: Female

DRUGS (5)
  1. ALBUTEROL [Concomitant]
  2. FUROSEMIDE [Concomitant]
  3. COZAAR [Concomitant]
  4. SYMBICORT [Suspect]
     Indication: ASTHMA
     Dosage: 80/4.5 UG TWO  PUFFS
     Route: 055
     Dates: start: 20070101, end: 20100820
  5. WARFARIN SODIUM [Concomitant]

REACTIONS (5)
  - ASTHENIA [None]
  - DYSPNOEA [None]
  - CHEST DISCOMFORT [None]
  - DRUG DOSE OMISSION [None]
  - TINNITUS [None]
